FAERS Safety Report 6699328-4 (Version None)
Quarter: 2010Q2

REPORT INFORMATION
  Report Type: 
  Country: None (occurrence: None)
  Receive Date: 20100426
  Receipt Date: 20091215
  Transmission Date: 20101027
  Serious: Yes (Other)
  Sender: FDA-Public Use
  Company Number: 2010AP000827

PATIENT
  Age: 34 Year
  Sex: Female

DRUGS (2)
  1. LAMOTRIGINE [Suspect]
     Indication: EPILEPSY
     Dosage: 250 MG;TAB;PO;AM; 350 MG;TAB;PO;HS
     Route: 048
     Dates: start: 20030101
  2. LAMOTRIGINE [Suspect]
     Indication: EPILEPSY
     Dosage: 250 MG;TAB;PO;AM; 350 MG;TAB;PO;HS
     Route: 048
     Dates: start: 20030101

REACTIONS (2)
  - DRUG EXPOSURE DURING PREGNANCY [None]
  - INTRA-UTERINE DEATH [None]
